FAERS Safety Report 4815683-1 (Version None)
Quarter: 2005Q4

REPORT INFORMATION
  Report Type: 
  Country: None (occurrence: None)
  Receive Date: 20051027
  Receipt Date: 20051020
  Transmission Date: 20060501
  Serious: Yes (Life-Threatening, Hospitalization)
  Sender: FDA-Public Use
  Company Number: 310001E05JPN

PATIENT
  Age: 38 Year
  Sex: Male

DRUGS (4)
  1. GONAL-F [Suspect]
     Indication: BLOOD GONADOTROPHIN DECREASED
     Dosage: 150 IU, 3 IN 1 WEEKS, SUBCUTANEOUS
     Route: 058
     Dates: start: 20040124, end: 20050518
  2. PROFASI HP [Suspect]
     Indication: SECONDARY HYPOGONADISM
     Dosage: 3000 IU, 3 IN 1 WEEKS, SUBCUTANEOUS
     Route: 058
     Dates: start: 20040124, end: 20050518
  3. LEVOTHROXINE SODIUM [Concomitant]
  4. HYDROCORTISONE                        /00028601/ [Concomitant]

REACTIONS (17)
  - ANXIETY [None]
  - BLOOD PRESSURE ABNORMAL [None]
  - CREATINE PHOSPHOKINASE DECREASED [None]
  - DEPRESSED LEVEL OF CONSCIOUSNESS [None]
  - DEPRESSION [None]
  - DYSLALIA [None]
  - EATING DISORDER [None]
  - FEELING GUILTY [None]
  - FRUSTRATION [None]
  - GLOSSOPTOSIS [None]
  - MUSCLE RIGIDITY [None]
  - NEUROLEPTIC MALIGNANT SYNDROME [None]
  - PARALYSIS [None]
  - PNEUMONIA [None]
  - SEDATION [None]
  - SUICIDAL IDEATION [None]
  - TENSION [None]
